FAERS Safety Report 15281544 (Version 2)
Quarter: 2018Q3

REPORT INFORMATION
  Report Type: Spontaneous
  Country: JP (occurrence: JP)
  Receive Date: 20180815
  Receipt Date: 20180821
  Transmission Date: 20181010
  Serious: Yes (Other)
  Sender: FDA-Public Use
  Company Number: JP-PURDUE PHARMA-GBR-2017-0051369

PATIENT
  Age: 52 Year
  Sex: Male

DRUGS (11)
  1. OXIFAST [Suspect]
     Active Substance: OXYCODONE
     Dosage: 450 MG, DAILY
     Route: 041
     Dates: end: 20171126
  2. ALPRAZOLAM. [Concomitant]
     Active Substance: ALPRAZOLAM
     Indication: ANXIETY DISORDER
     Dosage: 1.2 MG, DAILY
     Route: 048
     Dates: start: 20171124, end: 20171125
  3. ZOLPIDEM TARTRATE. [Suspect]
     Active Substance: ZOLPIDEM TARTRATE
     Indication: INSOMNIA
     Dosage: 5 MG, PRN
     Route: 048
     Dates: start: 20171124
  4. OXIFAST [Suspect]
     Active Substance: OXYCODONE
     Indication: LUNG NEOPLASM MALIGNANT
     Dosage: 350 MG, DAILY
     Route: 040
     Dates: end: 20171208
  5. LYRICA [Concomitant]
     Active Substance: PREGABALIN
     Indication: LUNG NEOPLASM MALIGNANT
     Dosage: 300 MG, DAILY
     Route: 048
     Dates: start: 20171124
  6. NEXIUM [Concomitant]
     Active Substance: ESOMEPRAZOLE MAGNESIUM
     Indication: GASTRIC ULCER
     Dosage: 20 MG, DAILY
     Route: 048
     Dates: start: 20171124
  7. KETALAR [Concomitant]
     Active Substance: KETAMINE HYDROCHLORIDE
     Indication: PAIN
     Dosage: 10 MG, QID
  8. BENZALIN                           /00036201/ [Concomitant]
     Active Substance: NITRAZEPAM
     Indication: INSOMNIA
     Dosage: 5 MG, DAILY
     Route: 048
     Dates: start: 20171124
  9. KETALAR [Concomitant]
     Active Substance: KETAMINE HYDROCHLORIDE
     Indication: LUNG NEOPLASM MALIGNANT
     Dosage: 30 MG, DAILY
     Dates: start: 20171124, end: 20171208
  10. OXIFAST [Suspect]
     Active Substance: OXYCODONE
     Dosage: 200 MG, DAILY
     Route: 041
     Dates: start: 20171130
  11. OXIFAST [Suspect]
     Active Substance: OXYCODONE
     Dosage: 300 MG, DAILY
     Route: 041
     Dates: start: 20171127

REACTIONS (2)
  - Drug dependence [Recovered/Resolved]
  - Delirium [Recovered/Resolved]

NARRATIVE: CASE EVENT DATE: 20171125
